FAERS Safety Report 6344276-2 (Version None)
Quarter: 2009Q3

REPORT INFORMATION
  Report Type: 
  Country: None (occurrence: None)
  Receive Date: 20090908
  Receipt Date: 20090824
  Transmission Date: 20100115
  Serious: Yes (Other)
  Sender: FDA-Public Use
  Company Number: JP-PFIZER INC-2009259934

PATIENT

DRUGS (2)
  1. SOLU-MEDROL [Suspect]
     Dosage: 1500 MG, 1X/DAY
  2. CEFAZOLIN [Concomitant]

REACTIONS (1)
  - CARDIAC ARREST [None]
